FAERS Safety Report 9498425 (Version 2)
Quarter: 2013Q4

REPORT INFORMATION
  Report Type: Spontaneous
  Country: US (occurrence: US)
  Receive Date: 20130904
  Receipt Date: 20131023
  Transmission Date: 20140711
  Serious: Yes (Other)
  Sender: FDA-Public Use
  Company Number: US-GLAXOSMITHKLINE-A1039729A

PATIENT
  Sex: Female

DRUGS (3)
  1. IMITREX [Suspect]
     Indication: MIGRAINE
     Route: 048
     Dates: end: 2005
  2. RELPAX [Suspect]
     Indication: MIGRAINE
  3. PAIN MEDICATION [Concomitant]

REACTIONS (5)
  - Muscle rupture [Unknown]
  - Gastric disorder [Recovered/Resolved]
  - Somnolence [Recovered/Resolved]
  - Medication overuse headache [Recovered/Resolved]
  - Drug ineffective [Unknown]
